FAERS Safety Report 25017435 (Version 1)
Quarter: 2025Q1

REPORT INFORMATION
  Report Type: Spontaneous
  Country: US (occurrence: None)
  Receive Date: 20250226
  Receipt Date: 20250226
  Transmission Date: 20250409
  Serious: Yes (unspecified)
  Sender: FDA-CTU
  Company Number: None

PATIENT
  Age: 62 Year
  Sex: Male

DRUGS (1)
  1. LENALIDOMIDE [Suspect]
     Active Substance: LENALIDOMIDE
     Indication: Plasma cell myeloma
     Dosage: 10MG QD ORAL
     Route: 048
     Dates: start: 20230330, end: 20250225

REACTIONS (4)
  - Diarrhoea [None]
  - Therapy cessation [None]
  - TP53 gene mutation [None]
  - Nonspecific reaction [None]

NARRATIVE: CASE EVENT DATE: 20250225
